FAERS Safety Report 6332592-X (Version None)
Quarter: 2009Q3

REPORT INFORMATION
  Report Type: 
  Country: None (occurrence: None)
  Receive Date: 20090828
  Receipt Date: 20090817
  Transmission Date: 20100115
  Serious: Yes (Other)
  Sender: FDA-Public Use
  Company Number: US-ROCHE-432950

PATIENT
  Sex: Male

DRUGS (7)
  1. PEGASYS [Suspect]
     Dosage: TAKEN EVERY WEEK. ROUTE REPORTED AS INJ.
     Route: 050
     Dates: start: 20050215
  2. PEGASYS [Suspect]
     Dosage: DOSE WAS CUT DOWN.
     Route: 050
     Dates: end: 20060108
  3. RIBAVIRIN [Suspect]
     Dosage: TAKEN AT 2AM AND 2PM.
     Route: 048
     Dates: start: 20050215, end: 20060118
  4. WELLBUTRIN [Concomitant]
     Indication: DEPRESSION
     Route: 048
     Dates: start: 20050301
  5. XANAX [Concomitant]
     Dosage: TAKING GENERIC XANAX.
     Route: 048
     Dates: start: 20050301
  6. RESTORIL [Concomitant]
     Indication: SLEEP DISORDER THERAPY
     Route: 048
     Dates: start: 20050501
  7. BUTALBITAL [Concomitant]
     Indication: MIGRAINE
     Route: 048
     Dates: start: 20050401

REACTIONS (11)
  - ACTIVITIES OF DAILY LIVING IMPAIRED [None]
  - BLINDNESS [None]
  - CHOLELITHIASIS [None]
  - CONVULSION [None]
  - DEAFNESS UNILATERAL [None]
  - DEPRESSION [None]
  - EPISTAXIS [None]
  - HALLUCINATIONS, MIXED [None]
  - HEARING IMPAIRED [None]
  - HEPATIC PAIN [None]
  - HEPATOMEGALY [None]
